FAERS Safety Report 14791124 (Version 1)
Quarter: 2018Q2

REPORT INFORMATION
  Report Type: Spontaneous
  Country: FR (occurrence: FR)
  Receive Date: 20180423
  Receipt Date: 20180423
  Transmission Date: 20180711
  Serious: Yes (Other)
  Sender: FDA-Public Use
  Company Number: FR-MERCK KGAA-2046286

PATIENT
  Age: 43 Year
  Sex: Female

DRUGS (1)
  1. NOVOTHYROX [Suspect]
     Active Substance: LEVOTHYROXINE SODIUM
     Indication: THYROIDITIS
     Dates: end: 2017

REACTIONS (36)
  - Vertigo [None]
  - Crying [None]
  - Decreased appetite [None]
  - Ageusia [None]
  - Social avoidant behaviour [None]
  - Blood glucose increased [Recovered/Resolved]
  - Blood potassium increased [None]
  - Aspartate aminotransferase decreased [None]
  - Muscle spasms [None]
  - Nausea [None]
  - Suicidal ideation [None]
  - Mood altered [None]
  - Eosinophil count increased [None]
  - Lymphocyte count increased [None]
  - Headache [None]
  - Loss of personal independence in daily activities [None]
  - Haematocrit increased [None]
  - Basophil count increased [None]
  - Myalgia [None]
  - Haemoglobin increased [None]
  - Impaired work ability [None]
  - Alopecia [None]
  - Tendonitis [None]
  - Thirst [None]
  - Irritability [None]
  - Loss of libido [None]
  - Depression [None]
  - Platelet count increased [None]
  - Impatience [None]
  - Insomnia [None]
  - Abdominal pain upper [None]
  - Tension [None]
  - Fatigue [None]
  - Disturbance in attention [None]
  - Feeling abnormal [None]
  - Asthenia [None]

NARRATIVE: CASE EVENT DATE: 20170208
